FAERS Safety Report 5335425-3 (Version None)
Quarter: 2007Q2

REPORT INFORMATION
  Report Type: 
  Country: None (occurrence: None)
  Receive Date: 20070525
  Receipt Date: 20070515
  Transmission Date: 20071010
  Serious: Yes (Hospitalization)
  Sender: FDA-Public Use
  Company Number: GB-PFIZER INC-2007040187

PATIENT
  Sex: Female
  Weight: 61 kg

DRUGS (8)
  1. EPIRUBICIN HYDROCHLORIDE SOLUTION, STERILE [Suspect]
  2. NEULASTA [Suspect]
  3. CYCLOPHOSPHAMIDE [Suspect]
  4. METHOTREXATE SODIUM [Suspect]
  5. FLUOROURACIL [Suspect]
  6. CYCLIZINE [Concomitant]
  7. DOCUSATE [Concomitant]
  8. SENNA [Concomitant]

REACTIONS (2)
  - PULMONARY FIBROSIS [None]
  - SEPSIS [None]
